FAERS Safety Report 6324006-0 (Version None)
Quarter: 2009Q3

REPORT INFORMATION
  Report Type: 
  Country: None (occurrence: None)
  Receive Date: 20090824
  Receipt Date: 20090818
  Transmission Date: 20100115
  Serious: Yes (Death)
  Sender: FDA-Public Use
  Company Number: B0589806A

PATIENT
  Age: 58 Year
  Sex: Male
  Weight: 85 kg

DRUGS (2)
  1. AUGMENTIN XR [Suspect]
     Indication: EPIDIDYMITIS
     Route: 042
     Dates: start: 20090719, end: 20090719
  2. CIPROFLOXACIN HCL [Suspect]
     Indication: EPIDIDYMITIS
     Route: 042
     Dates: start: 20090719, end: 20090719

REACTIONS (4)
  - ANAPHYLACTIC SHOCK [None]
  - CARDIO-RESPIRATORY ARREST [None]
  - INJECTION SITE PRURITUS [None]
  - VENTRICULAR FIBRILLATION [None]
